FAERS Safety Report 8312057-6 (Version None)
Quarter: 2012Q2

REPORT INFORMATION
  Report Type: 
  Country: None (occurrence: None)
  Receive Date: 20120425
  Receipt Date: 20120412
  Transmission Date: 20120825
  Serious: Yes (Death, Hospitalization)
  Sender: FDA-Public Use
  Company Number: SE-ELI_LILLY_AND_COMPANY-SE201111008438

PATIENT
  Age: 56 Year
  Sex: Female

DRUGS (5)
  1. ZYPREXA [Suspect]
     Indication: BIPOLAR DISORDER
     Dosage: 10 MG, QD
     Route: 048
     Dates: end: 20111112
  2. SEROQUEL [Concomitant]
     Dosage: 100 MG, QD
     Route: 048
     Dates: end: 20111112
  3. OLANZAPINE [Suspect]
     Indication: BIPOLAR DISORDER
     Dosage: UNK
     Dates: start: 20111116
  4. LITHIONIT [Concomitant]
     Indication: BIPOLAR DISORDER
     Dosage: 2 DF, BID
     Route: 048
     Dates: end: 20111112
  5. SEROQUEL [Concomitant]
     Indication: BIPOLAR DISORDER
     Dosage: 300 MG, QD
     Route: 048
     Dates: end: 20111112

REACTIONS (6)
  - EMPYEMA [None]
  - MULTIPLE SCLEROSIS [None]
  - DEATH [None]
  - LIP AND/OR ORAL CAVITY CANCER [None]
  - HYPERTENSION [None]
  - PNEUMONIA [None]
